FAERS Safety Report 16847154 (Version 3)
Quarter: 2019Q4

REPORT INFORMATION
  Report Type: Report from Study
  Country: US (occurrence: US)
  Receive Date: 20190924
  Receipt Date: 20191126
  Transmission Date: 20200122
  Serious: Yes (Death, Hospitalization)
  Sender: FDA-Public Use
  Company Number: US-TAKEDA-2019TUS053402

PATIENT
  Age: 70 Year
  Sex: Female

DRUGS (1)
  1. BRIGATINIB [Suspect]
     Active Substance: BRIGATINIB
     Indication: LUNG NEOPLASM MALIGNANT
     Dosage: 180 MILLIGRAM, QD
     Route: 048
     Dates: start: 20190904

REACTIONS (5)
  - Transfusion related complication [Unknown]
  - Death [Fatal]
  - Haemoptysis [Unknown]
  - Abdominal discomfort [Unknown]
  - Pneumonia [Unknown]

NARRATIVE: CASE EVENT DATE: 201909
